FAERS Safety Report 8803395 (Version 1)
Quarter: 2012Q4

REPORT INFORMATION
  Report Type: 
  Country: US (occurrence: US)
  Receive Date: 20120924
  Receipt Date: 20120924
  Transmission Date: 20130627
  Serious: Yes (Life-Threatening, Hospitalization, Other)
  Sender: FDA-Public Use
  Company Number: US-BAYER-2012-097410

PATIENT
  Age: 23 Year
  Sex: Female
  Weight: 74.83 kg

DRUGS (9)
  1. YAZ [Suspect]
     Indication: MENSTRUATION IRREGULAR
     Dosage: UNK
     Dates: start: 20080814, end: 20090914
  2. YAZ [Suspect]
     Indication: PREMENSTRUAL SYNDROME
  3. IMITREX [Concomitant]
     Dosage: UNK
     Dates: start: 2005
  4. MOTRIN [Concomitant]
     Dosage: UNK
     Dates: start: 2000, end: 2009
  5. BENZACLIN [Concomitant]
     Indication: ACNE
     Dosage: UNK
     Route: 061
     Dates: start: 2002, end: 2011
  6. DIFFERIN [Concomitant]
     Indication: ACNE
     Dosage: UNK
     Dates: start: 2002, end: 2011
  7. DORYX [Concomitant]
     Dosage: 75 mg, every other day
     Dates: start: 20090310, end: 20091102
  8. CALCIUM SUPPLEMENT [Concomitant]
     Dosage: 500 mg, Daily
  9. MULTI-VITAMIN [Concomitant]
     Dosage: UNK; daily

REACTIONS (12)
  - Pulmonary embolism [None]
  - Deep vein thrombosis [Recovering/Resolving]
  - Vein disorder [None]
  - Pain [None]
  - Muscle spasms [None]
  - Pain in extremity [Recovering/Resolving]
  - Oedema peripheral [Recovering/Resolving]
  - Gait disturbance [Recovering/Resolving]
  - Hypoaesthesia [Recovering/Resolving]
  - Anxiety [None]
  - Fear of disease [None]
  - Dyspnoea [None]
